FAERS Safety Report 4738315-X (Version None)
Quarter: 2005Q3

REPORT INFORMATION
  Report Type: 
  Country: None (occurrence: None)
  Receive Date: 20050728
  Receipt Date: 20050407
  Transmission Date: 20060218
  Serious: Yes (Other)
  Sender: FDA-Public Use
  Company Number: 200512913US

PATIENT
  Sex: Male

DRUGS (1)
  1. KETEK [Suspect]
     Indication: SINUSITIS

REACTIONS (5)
  - BILIRUBINURIA [None]
  - CHROMATURIA [None]
  - HEPATIC ENZYME INCREASED [None]
  - HEPATOCELLULAR DAMAGE [None]
  - INFLUENZA [None]
